FAERS Safety Report 9518839 (Version 1)
Quarter: 2013Q3

REPORT INFORMATION
  Report Type: Spontaneous
  Country: US (occurrence: None)
  Receive Date: 20130910
  Receipt Date: 20130910
  Transmission Date: 20140515
  Serious: Yes (Other)
  Sender: FDA-Public Use
  Company Number: None

PATIENT
  Age: 27 Year
  Sex: Male
  Weight: 77.11 kg

DRUGS (3)
  1. DAYTRANA [Suspect]
     Indication: ATTENTION DEFICIT/HYPERACTIVITY DISORDER
     Dosage: 1 PATCH QD TANSDERMAL
     Route: 062
     Dates: start: 20130701, end: 20130906
  2. MIRTAZAPINE [Concomitant]
  3. PRAZOSIN [Concomitant]

REACTIONS (2)
  - Application site erythema [None]
  - Application site pruritus [None]
